FAERS Safety Report 24294099 (Version 1)
Quarter: 2024Q3

REPORT INFORMATION
  Report Type: Spontaneous
  Country: US (occurrence: None)
  Receive Date: 20240906
  Receipt Date: 20240906
  Transmission Date: 20241017
  Serious: No
  Sender: DOMPE FARMACEUTICI
  Company Number: US-FARMAPROD-202404-1267

PATIENT
  Age: 77 Year
  Sex: Female
  Weight: 64.41 kg

DRUGS (24)
  1. OXERVATE [Suspect]
     Active Substance: CENEGERMIN-BKBJ
     Indication: Neurotrophic keratopathy
     Route: 047
     Dates: start: 20240315
  2. MOXIFLOXACIN [Concomitant]
     Active Substance: MOXIFLOXACIN
  3. PAROXETINE HYDROCHLORIDE [Concomitant]
     Active Substance: PAROXETINE HYDROCHLORIDE\PAROXETINE HYDROCHLORIDE ANHYDROUS
  4. METHOTREXATE [Concomitant]
     Active Substance: METHOTREXATE
  5. SENNA [Concomitant]
     Active Substance: SENNA LEAF\SENNOSIDES\SENNOSIDES A AND B
  6. PANTOPRAZOLE SODIUM [Concomitant]
     Active Substance: PANTOPRAZOLE SODIUM
  7. BETIMOL [Concomitant]
     Active Substance: TIMOLOL
  8. PREDNISOLONE ACETATE [Concomitant]
     Active Substance: PREDNISOLONE ACETATE
  9. ROSUVASTATIN CALCIUM [Concomitant]
     Active Substance: ROSUVASTATIN CALCIUM
  10. CREON [Concomitant]
     Active Substance: PANCRELIPASE AMYLASE\PANCRELIPASE LIPASE\PANCRELIPASE PROTEASE
     Dosage: 12K-38K-60
  11. HYDROXYCHLOROQUINE SULFATE [Concomitant]
     Active Substance: HYDROXYCHLOROQUINE SULFATE
  12. JANUVIA [Concomitant]
     Active Substance: SITAGLIPTIN PHOSPHATE
  13. PREDNISONE [Concomitant]
     Active Substance: PREDNISONE
  14. LISINOPRIL [Concomitant]
     Active Substance: LISINOPRIL
  15. ASPIRIN [Concomitant]
     Active Substance: ASPIRIN
  16. GABAPENTIN [Concomitant]
     Active Substance: GABAPENTIN
  17. SUCRALFATE [Concomitant]
     Active Substance: SUCRALFATE
     Dosage: 1 G/10 ML
  18. DIFLUPREDNATE [Concomitant]
     Active Substance: DIFLUPREDNATE
  19. TOPROL XL [Concomitant]
     Active Substance: METOPROLOL SUCCINATE
     Dosage: 24H
  20. TIMOLOL MALEATE [Concomitant]
     Active Substance: TIMOLOL MALEATE
  21. GLIMEPIRIDE [Concomitant]
     Active Substance: GLIMEPIRIDE
  22. LOTEMAX [Concomitant]
     Active Substance: LOTEPREDNOL ETABONATE
     Dosage: OCULUS SINISTER
  23. SIMBRINZA [Concomitant]
     Active Substance: BRIMONIDINE TARTRATE\BRINZOLAMIDE
     Dosage: 1-0.2%, OCULUS DEXTER
  24. TIMOLOL [Concomitant]
     Active Substance: TIMOLOL
     Dosage: OCULUS DEXTER

REACTIONS (1)
  - Drug ineffective [Not Recovered/Not Resolved]

NARRATIVE: CASE EVENT DATE: 20240315
